FAERS Safety Report 15020488 (Version 1)
Quarter: 2018Q2

REPORT INFORMATION
  Report Type: Spontaneous
  Country: US (occurrence: US)
  Receive Date: 20180601
  Receipt Date: 20180601
  Transmission Date: 20180711
  Serious: No
  Sender: FDA-Public Use
  Company Number: None

PATIENT
  Sex: Female

DRUGS (1)
  1. PERMETHRIN 1% [Suspect]
     Active Substance: PERMETHRIN

REACTIONS (1)
  - Dermatitis allergic [None]
